FAERS Safety Report 7511566-7 (Version None)
Quarter: 2011Q2

REPORT INFORMATION
  Report Type: 
  Country: None (occurrence: None)
  Receive Date: 20110531
  Receipt Date: 20110523
  Transmission Date: 20111010
  Serious: Yes (Other)
  Sender: FDA-Public Use
  Company Number: GB-PFIZER INC-2007006625

PATIENT
  Age: 77 Year
  Sex: Male
  Weight: 73 kg

DRUGS (19)
  1. PANTOPRAZOLE [Suspect]
     Indication: STRESS ULCER
  2. FLOXACILLIN SODIUM [Concomitant]
     Indication: STAPHYLOCOCCAL INFECTION
     Dosage: 1.5 MG, 4X/DAY
     Route: 042
     Dates: start: 20041230, end: 20050104
  3. HEPARIN [Concomitant]
     Indication: DEEP VEIN THROMBOSIS
     Route: 042
     Dates: start: 20041228
  4. HEPARIN [Concomitant]
     Indication: PROPHYLAXIS
  5. METOCLOPRAMIDE [Concomitant]
     Indication: GASTROENTERITIS VIRAL
     Dosage: UNK
     Route: 042
     Dates: start: 20041224, end: 20050124
  6. INSULIN [Concomitant]
     Indication: HYPERGLYCAEMIA
     Route: 042
  7. PIPERACILLIN [Concomitant]
     Indication: GASTROINTESTINAL CARCINOMA
     Dosage: 5 G, 3X/DAY
     Route: 042
     Dates: start: 20041231, end: 20050117
  8. AMIODARONE HCL [Concomitant]
     Indication: ATRIAL FIBRILLATION
     Route: 042
     Dates: start: 20050102, end: 20050106
  9. PROPOFOL [Concomitant]
     Indication: SEDATION
     Route: 042
     Dates: start: 20050102, end: 20050105
  10. LANSOPRAZOLE [Suspect]
     Indication: PEPTIC ULCER
  11. PANTOPRAZOLE [Suspect]
     Indication: PEPTIC ULCER
  12. TEICOPLANIN [Concomitant]
     Indication: STAPHYLOCOCCAL INFECTION
     Route: 042
     Dates: start: 20041231, end: 20050104
  13. ALFENTANIL [Concomitant]
     Indication: SEDATION
     Route: 042
     Dates: start: 20050102, end: 20050124
  14. FUROSEMIDE [Concomitant]
     Indication: POLYURIA
     Route: 042
  15. PANTOPRAZOLE [Suspect]
     Indication: PROPHYLAXIS
     Route: 042
     Dates: start: 20050102, end: 20050127
  16. LINEZOLID [Suspect]
     Indication: STAPHYLOCOCCAL INFECTION
     Route: 042
     Dates: start: 20050104, end: 20050120
  17. PIPERACILLIN [Concomitant]
     Indication: PERITONITIS
  18. NOREPINEPHRINE BITARTRATE [Concomitant]
     Route: 042
     Dates: start: 20050102, end: 20050111
  19. LANSOPRAZOLE [Suspect]
     Indication: PROPHYLAXIS
     Route: 048
     Dates: start: 20050127, end: 20050201

REACTIONS (5)
  - BLOOD BILIRUBIN INCREASED [None]
  - BLOOD ALKALINE PHOSPHATASE INCREASED [None]
  - ALANINE AMINOTRANSFERASE INCREASED [None]
  - RENAL FAILURE ACUTE [None]
  - LIVER FUNCTION TEST ABNORMAL [None]
